FAERS Safety Report 4415747-0 (Version None)
Quarter: 2004Q2

REPORT INFORMATION
  Report Type: 
  Country: None (occurrence: None)
  Receive Date: 20040630
  Receipt Date: 20040323
  Transmission Date: 20050107
  Serious: Yes (Other)
  Sender: FDA-Public Use
  Company Number: 2004019844

PATIENT
  Sex: Male

DRUGS (2)
  1. ZOLOFT [Suspect]
     Indication: SELF ESTEEM DECREASED
     Dosage: 25 MG (DAILY), ORAL
     Route: 048
     Dates: end: 20030601
  2. OBETROL (DEXAMFETAMINE SULFATE, AMFETAMINE SULFATE,AMFETAMINE ASPARTAT [Concomitant]

REACTIONS (4)
  - AGGRESSION [None]
  - CRYING [None]
  - FEELING GUILTY [None]
  - SUICIDE ATTEMPT [None]
